FAERS Safety Report 24614325 (Version 2)
Quarter: 2024Q4

REPORT INFORMATION
  Report Type: Report from Study
  Country: NL (occurrence: NL)
  Receive Date: 20241113
  Receipt Date: 20241127
  Transmission Date: 20250115
  Serious: Yes (Hospitalization)
  Sender: ABBVIE
  Company Number: NL-ABBVIE-5825936

PATIENT
  Age: 56 Year
  Sex: Female

DRUGS (12)
  1. CARBIDOPA\LEVODOPA [Suspect]
     Active Substance: CARBIDOPA\LEVODOPA
     Indication: Parkinson^s disease
     Dosage: LD: 1.80ML, BIR: 0.51ML/H,  LIR: 0.25ML/H, ED: 0.10ML; REMAINS AT 24 HOURS
     Route: 058
     Dates: start: 20240617, end: 20240619
  2. CARBIDOPA\LEVODOPA [Suspect]
     Active Substance: CARBIDOPA\LEVODOPA
     Dosage: LD: 1.80ML, BIR: 0.78 ML/H, HIR: 0.78 ML/H, LIR: 0.37 ML/H, ED: 0.30 ML; REMAINS AT 24 HOURS
     Route: 058
     Dates: start: 20240717, end: 20240723
  3. CARBIDOPA\LEVODOPA [Suspect]
     Active Substance: CARBIDOPA\LEVODOPA
     Dosage: LD: 1.80ML, BIR: 0.66ML/H, LIR: 0.31ML/H, ED: 0.30ML; REMAINS AT 24 HOURS
     Route: 058
     Dates: start: 20240619, end: 20240620
  4. CARBIDOPA\LEVODOPA [Suspect]
     Active Substance: CARBIDOPA\LEVODOPA
     Dosage: LD: 1.80ML, BIR: 0.87 ML/H, HIR: 0.87 ML/H, LIR: 0.49 ML/H, ED: 0.30 ML, REMAINS AT 24 HOURS
     Route: 058
     Dates: start: 20241120
  5. CARBIDOPA\LEVODOPA [Suspect]
     Active Substance: CARBIDOPA\LEVODOPA
     Dosage: LD: 1.80ML, BIR: 0.81 ML/H, HIR: 0.81 ML/H, LIR: 0.40 ML/H, ED: 0.30 ML; REMAINS AT 24 HOURS
     Route: 058
     Dates: start: 20240730, end: 20240801
  6. CARBIDOPA\LEVODOPA [Suspect]
     Active Substance: CARBIDOPA\LEVODOPA
     Dosage: REMAINS AT 24 HOURS:
     Route: 058
     Dates: start: 20240430
  7. CARBIDOPA\LEVODOPA [Suspect]
     Active Substance: CARBIDOPA\LEVODOPA
     Dosage: LD: 1.80ML, BIR: 0.81 ML/H, HIR: 0.81 ML/H, LIR: 0.40 ML/H, ED: 0.30 ML; REMAINS AT 24 HOURS
     Route: 058
     Dates: start: 20240723, end: 20240730
  8. CARBIDOPA\LEVODOPA [Suspect]
     Active Substance: CARBIDOPA\LEVODOPA
     Dosage: LD: 1.80ML, BIR: 0.84 ML/H, HIR: 0.84 ML/H, LIR: 0.43 ML/H, ED: 0.30 ML; REMAINS AT 24 HOURS
     Route: 058
     Dates: start: 20240801, end: 20240805
  9. CARBIDOPA\LEVODOPA [Suspect]
     Active Substance: CARBIDOPA\LEVODOPA
     Dosage: LD: 1.80ML, BIR: 0.75 ML/H, HIR: 0.75 ML/H, LIR: 0.34 ML/H, ED: 0.30 ML; REMAINS AT 24 HOURS
     Route: 058
     Dates: start: 20240620, end: 20240626
  10. CARBIDOPA\LEVODOPA [Suspect]
     Active Substance: CARBIDOPA\LEVODOPA
     Dosage: LD: 1.80ML, BIR: 0.87 ML/H, HIR: 0.87 ML/H, LIR: 0.30 ML/H, ED: 0.30 ML, REMAINS AT 24 HOURS
     Route: 058
     Dates: start: 20240815, end: 20241120
  11. CARBIDOPA\LEVODOPA [Suspect]
     Active Substance: CARBIDOPA\LEVODOPA
     Dosage: LD: 1.80ML, BIR: 0.84 ML/H, HIR: 0.84 ML/H, LIR: 0.43 ML/H, ED: 0.30 ML; REMAINS AT 24 HOURS
     Route: 058
     Dates: start: 20240805, end: 20240815
  12. CARBIDOPA\LEVODOPA [Suspect]
     Active Substance: CARBIDOPA\LEVODOPA
     Dosage: LD: 1.80ML, BIR: 0.78 ML/H, HIR: 0.78 ML/H, LIR: 0.37 ML/H, ED: 0.30 ML; REMAINS AT 24 HOURS
     Route: 058
     Dates: start: 20240626, end: 20240717

REACTIONS (41)
  - General physical health deterioration [Not Recovered/Not Resolved]
  - Fall [Not Recovered/Not Resolved]
  - Freezing phenomenon [Not Recovered/Not Resolved]
  - Mastication disorder [Not Recovered/Not Resolved]
  - Ageusia [Not Recovered/Not Resolved]
  - Muscle rigidity [Not Recovered/Not Resolved]
  - Unevaluable event [Not Recovered/Not Resolved]
  - Hypophagia [Not Recovered/Not Resolved]
  - Device issue [Recovered/Resolved]
  - Device issue [Unknown]
  - Gait disturbance [Not Recovered/Not Resolved]
  - Mobility decreased [Not Recovered/Not Resolved]
  - Dizziness [Not Recovered/Not Resolved]
  - Freezing phenomenon [Not Recovered/Not Resolved]
  - Abnormal dreams [Not Recovered/Not Resolved]
  - Oedema peripheral [Not Recovered/Not Resolved]
  - Musculoskeletal stiffness [Not Recovered/Not Resolved]
  - Weight decreased [Not Recovered/Not Resolved]
  - Infusion site erythema [Not Recovered/Not Resolved]
  - Speech disorder [Not Recovered/Not Resolved]
  - Feeling abnormal [Not Recovered/Not Resolved]
  - Catheter site infection [Not Recovered/Not Resolved]
  - Speech disorder [Not Recovered/Not Resolved]
  - Injection site papule [Not Recovered/Not Resolved]
  - Bradykinesia [Not Recovered/Not Resolved]
  - Infusion site erythema [Not Recovered/Not Resolved]
  - Reduced facial expression [Not Recovered/Not Resolved]
  - Infusion site reaction [Unknown]
  - Infusion site pain [Not Recovered/Not Resolved]
  - Hypophagia [Not Recovered/Not Resolved]
  - Skin infection [Not Recovered/Not Resolved]
  - On and off phenomenon [Not Recovered/Not Resolved]
  - Vomiting [Recovering/Resolving]
  - Stress [Not Recovered/Not Resolved]
  - Malaise [Not Recovered/Not Resolved]
  - Infusion site pain [Not Recovered/Not Resolved]
  - Unevaluable event [Not Recovered/Not Resolved]
  - Unevaluable event [Not Recovered/Not Resolved]
  - Asthenia [Not Recovered/Not Resolved]
  - Fatigue [Not Recovered/Not Resolved]
  - Dermatitis [Not Recovered/Not Resolved]

NARRATIVE: CASE EVENT DATE: 20240101
